FAERS Safety Report 23903591 (Version 1)
Quarter: 2024Q2

REPORT INFORMATION
  Report Type: Spontaneous
  Country: US (occurrence: US)
  Receive Date: 20240527
  Receipt Date: 20240527
  Transmission Date: 20240716
  Serious: Yes (Other)
  Sender: FDA-Public Use
  Company Number: US-TEVA-VS-3200403

PATIENT
  Age: 85 Year
  Sex: Female

DRUGS (6)
  1. AJOVY [Suspect]
     Active Substance: FREMANEZUMAB-VFRM
     Indication: Migraine without aura
     Dosage: 225/1.5 MG/ML
     Route: 065
  2. AJOVY [Suspect]
     Active Substance: FREMANEZUMAB-VFRM
  3. DIGOXIN [Concomitant]
     Active Substance: DIGOXIN
  4. GABAPENTIN [Concomitant]
     Active Substance: GABAPENTIN
  5. BOTOX [Concomitant]
     Active Substance: ONABOTULINUMTOXINA
  6. Cartia [Concomitant]

REACTIONS (1)
  - Dementia Alzheimer^s type [Unknown]
